FAERS Safety Report 8974587 (Version 1)
Quarter: 2012Q4

REPORT INFORMATION
  Report Type: 
  Country: TR (occurrence: TR)
  Receive Date: 20121220
  Receipt Date: 20121220
  Transmission Date: 20130627
  Serious: Yes (Congenital Anomaly, Other)
  Sender: FDA-Public Use
  Company Number: TR-AMGEN-TURSP2012028839

PATIENT
  Age: 3 Month

DRUGS (1)
  1. ENBREL [Suspect]
     Dosage: 50 mg, weekly
     Route: 064
     Dates: start: 20110503, end: 20120215

REACTIONS (2)
  - Maternal exposure timing unspecified [Unknown]
  - Ventricular septal defect [Not Recovered/Not Resolved]
